FAERS Safety Report 4467794-0 (Version None)
Quarter: 2004Q4

REPORT INFORMATION
  Report Type: 
  Country: None (occurrence: None)
  Receive Date: 20041004
  Receipt Date: 20041004
  Transmission Date: 20050328
  Serious: Yes (Other)
  Sender: FDA-Public Use
  Company Number: None

PATIENT
  Age: 50 Year
  Sex: Female
  Weight: 58.9676 kg

DRUGS (4)
  1. EFFEXOR XR [Suspect]
     Indication: DEPRESSION
     Dosage: 1 PER DAY ORAL
     Route: 048
     Dates: start: 20030903, end: 20031020
  2. EFFEXOR XR [Suspect]
     Indication: GENERALISED ANXIETY DISORDER
     Dosage: 1 PER DAY ORAL
     Route: 048
     Dates: start: 20030903, end: 20031020
  3. EFFEXOR XR [Suspect]
     Indication: DEPRESSION
     Dosage: 1 PER DAY ORAL
     Route: 048
     Dates: start: 20031020, end: 20040521
  4. EFFEXOR XR [Suspect]
     Indication: GENERALISED ANXIETY DISORDER
     Dosage: 1 PER DAY ORAL
     Route: 048
     Dates: start: 20031020, end: 20040521

REACTIONS (6)
  - ANXIETY [None]
  - BLOOD PRESSURE INCREASED [None]
  - DIZZINESS [None]
  - HEART RATE INCREASED [None]
  - HYPOAESTHESIA [None]
  - PARAESTHESIA [None]
